FAERS Safety Report 9109794 (Version 1)
Quarter: 2013Q1

REPORT INFORMATION
  Report Type: Spontaneous
  Country: US (occurrence: US)
  Receive Date: 20130222
  Receipt Date: 20130222
  Transmission Date: 20140127
  Serious: Yes (Hospitalization)
  Sender: FDA-Public Use
  Company Number: US-ASTRAZENECA-2013SE10727

PATIENT
  Age: 43 Year
  Sex: Male
  Weight: 86.2 kg

DRUGS (6)
  1. OMEPRAZOLE [Suspect]
     Indication: GASTROOESOPHAGEAL REFLUX DISEASE
     Route: 048
     Dates: start: 2011
  2. NEXIUM [Suspect]
     Indication: GASTROOESOPHAGEAL REFLUX DISEASE
     Route: 048
  3. NEXIUM [Suspect]
     Indication: GASTROOESOPHAGEAL REFLUX DISEASE
     Route: 048
     Dates: start: 2008, end: 2011
  4. IBUPROFEN [Concomitant]
     Indication: PAIN
     Dates: start: 201002
  5. GABAPENTIN [Concomitant]
     Indication: NERVE INJURY
     Dates: start: 2010
  6. GENERIC FOR ZANADEX [Concomitant]
     Dates: start: 2010

REACTIONS (9)
  - Pain [Unknown]
  - Oesophageal stenosis [Unknown]
  - Gastrooesophageal reflux disease [Unknown]
  - Throat irritation [Unknown]
  - Dysphagia [Unknown]
  - Insomnia [Unknown]
  - Dysgeusia [Unknown]
  - Drug ineffective [Unknown]
  - Intentional drug misuse [Unknown]
